FAERS Safety Report 10231634 (Version 2)
Quarter: 2014Q2

REPORT INFORMATION
  Report Type: Spontaneous
  Country: GB (occurrence: GB)
  Receive Date: 20140611
  Receipt Date: 20140623
  Transmission Date: 20141212
  Serious: Yes (Other)
  Sender: FDA-Public Use
  Company Number: PHFR2014GB004047

PATIENT
  Sex: Female

DRUGS (1)
  1. TEGRETOL [Suspect]
     Indication: EPILEPSY
     Dosage: 3 DF, DAILY
     Route: 048
     Dates: start: 1988

REACTIONS (14)
  - Anaphylactic shock [Unknown]
  - Soft tissue disorder [Unknown]
  - Eye swelling [Unknown]
  - Colour blindness acquired [Unknown]
  - Hormone level abnormal [Unknown]
  - Thyroid disorder [Unknown]
  - Polyglandular disorder [Unknown]
  - Pain [Unknown]
  - Eye disorder [Unknown]
  - Diplopia [Unknown]
  - Fatigue [Unknown]
  - Rash [Unknown]
  - Arthralgia [Unknown]
  - Alopecia [Unknown]
